FAERS Safety Report 23700523 (Version 1)
Quarter: 2024Q2

REPORT INFORMATION
  Report Type: Spontaneous
  Country: US (occurrence: US)
  Receive Date: 20240403
  Receipt Date: 20240403
  Transmission Date: 20240716
  Serious: No
  Sender: FDA-Public Use
  Company Number: US-JNJFOC-20240405702

PATIENT

DRUGS (2)
  1. ERLEADA [Interacting]
     Active Substance: APALUTAMIDE
     Indication: Product used for unknown indication
     Route: 048
  2. RELUGOLIX [Interacting]
     Active Substance: RELUGOLIX
     Indication: Product used for unknown indication
     Route: 065

REACTIONS (1)
  - Drug interaction [Unknown]
